FAERS Safety Report 7347325-8 (Version None)
Quarter: 2011Q1

REPORT INFORMATION
  Report Type: 
  Country: None (occurrence: None)
  Receive Date: 20110311
  Receipt Date: 20110304
  Transmission Date: 20110831
  Serious: Yes (Hospitalization)
  Sender: FDA-Public Use
  Company Number: CA-B.I. PHARMACEUTICALS,INC./RIDGEFIELD-2011-CN-00201CN

PATIENT
  Age: 66 Year
  Sex: Female

DRUGS (4)
  1. RISEDRONATE [Concomitant]
     Dosage: 35 MG ON WEDNESDAYS
  2. RABEPRAZOLE SODIUM [Concomitant]
     Dosage: 20 MG
  3. PRADAXA [Suspect]
     Indication: HIP ARTHROPLASTY
     Dosage: 220 MG
     Dates: start: 20110111, end: 20110117
  4. VITAMIN D [Concomitant]
     Dosage: 1000 U

REACTIONS (1)
  - ISCHAEMIC STROKE [None]
